FAERS Safety Report 18492151 (Version 1)
Quarter: 2020Q4

REPORT INFORMATION
  Report Type: Spontaneous
  Country: DE (occurrence: DE)
  Receive Date: 20201111
  Receipt Date: 20201111
  Transmission Date: 20210114
  Serious: Yes (Hospitalization)
  Sender: FDA-Public Use
  Company Number: DE-PFIZER INC-2020442250

PATIENT
  Age: 56 Year
  Sex: Female
  Weight: 125 kg

DRUGS (3)
  1. RAMIPRIL HCT [Concomitant]
     Active Substance: HYDROCHLOROTHIAZIDE\RAMIPRIL
     Dosage: 5 MG, 1X/DAY, (1-0-0-0)
  2. METHOTREXATE SODIUM. [Suspect]
     Active Substance: METHOTREXATE SODIUM
     Dosage: 15 MG ( FOR 2 WEEKS)
  3. FELODIPIN [Suspect]
     Active Substance: FELODIPINE
     Dosage: 5 MG, 1X/DAY

REACTIONS (11)
  - Blood pressure increased [Unknown]
  - Abdominal pain upper [Unknown]
  - Gamma-glutamyltransferase increased [Unknown]
  - Condition aggravated [Unknown]
  - Alanine aminotransferase increased [Unknown]
  - Dyspnoea [Unknown]
  - General physical health deterioration [Unknown]
  - Nausea [Unknown]
  - Aspartate aminotransferase increased [Unknown]
  - Fatigue [Unknown]
  - Oedema peripheral [Unknown]

NARRATIVE: CASE EVENT DATE: 20200817
